FAERS Safety Report 21376658 (Version 1)
Quarter: 2022Q3

REPORT INFORMATION
  Report Type: Spontaneous
  Country: JP (occurrence: JP)
  Receive Date: 20220926
  Receipt Date: 20220926
  Transmission Date: 20221026
  Serious: Yes (Disabling, Other)
  Sender: FDA-Public Use
  Company Number: JP-NOVARTISPH-NVSJ2021JP015146

PATIENT
  Age: 27 Year
  Sex: Female

DRUGS (3)
  1. ANAPEINE [Suspect]
     Active Substance: ROPIVACAINE HYDROCHLORIDE
     Dosage: 0.2%, 100 ML, A BAG
     Route: 065
     Dates: start: 201809, end: 201809
  2. XYLOCAINE [Suspect]
     Active Substance: LIDOCAINE HYDROCHLORIDE
     Indication: Product used for unknown indication
     Dosage: 1%, 5 ML, AN AMPULE
     Route: 065
     Dates: start: 201809, end: 201809
  3. XYLOCAINE [Suspect]
     Active Substance: LIDOCAINE HYDROCHLORIDE
     Indication: Product used for unknown indication
     Dosage: 2%, 5 ML, AN AMPULE
     Route: 065
     Dates: start: 201809, end: 201809

REACTIONS (5)
  - Lumbosacral radiculopathy [Unknown]
  - Motor dysfunction [Unknown]
  - Bladder disorder [Unknown]
  - Anorectal disorder [Unknown]
  - Loss of personal independence in daily activities [Unknown]
